FAERS Safety Report 11635766 (Version 2)
Quarter: 2015Q4

REPORT INFORMATION
  Report Type: Spontaneous
  Country: US (occurrence: US)
  Receive Date: 20151016
  Receipt Date: 20151223
  Transmission Date: 20160304
  Serious: No
  Sender: FDA-Public Use
  Company Number: US-PFIZER INC-2015339890

PATIENT
  Age: 70 Year
  Sex: Female
  Weight: 51 kg

DRUGS (5)
  1. TYLENOL [Concomitant]
     Active Substance: ACETAMINOPHEN
     Indication: PAIN
     Dosage: 0.325 MG, 1X/DAY (IF THE PAIN GETS WORSE, SHE TAKES ANOTHER BUT MOST OF THE TIME SHE TAKES ONE)
  2. LEVOTHYROXINE. [Concomitant]
     Active Substance: LEVOTHYROXINE
     Indication: THYROID DISORDER
     Dosage: UNK, 1X/DAY
  3. INLYTA [Suspect]
     Active Substance: AXITINIB
     Indication: RENAL CANCER
     Dosage: 5 MG, 2X/DAY
     Route: 048
     Dates: start: 201506
  4. INLYTA [Suspect]
     Active Substance: AXITINIB
     Dosage: UNK
  5. HYDROMORPHONE [Concomitant]
     Active Substance: HYDROMORPHONE
     Indication: PAIN
     Dosage: 2 MG, UNK (SOMETIMES SHE TAKES UP TO 2 OR 4 A DAY THAT JUST DEPENDS ON THE PAIN LEVEL)

REACTIONS (3)
  - Disease progression [Unknown]
  - Renal cancer [Unknown]
  - Pain [Not Recovered/Not Resolved]
